FAERS Safety Report 9951322 (Version 1)
Quarter: 2014Q1

REPORT INFORMATION
  Report Type: Spontaneous
  Country: FR (occurrence: FR)
  Receive Date: 20140304
  Receipt Date: 20140304
  Transmission Date: 20141002
  Serious: Yes (Hospitalization)
  Sender: FDA-Public Use
  Company Number: FR-SA-2014SA022791

PATIENT
  Age: 69 Year
  Sex: Female

DRUGS (4)
  1. LOVENOX [Suspect]
     Indication: THROMBOSIS PROPHYLAXIS
     Route: 058
     Dates: start: 20131216, end: 20140116
  2. TOPALGIC LP [Suspect]
     Indication: PAIN
     Dosage: STRENGTH: 100 MG PROLONGED RELEASE TABLET
     Route: 048
     Dates: start: 20131216, end: 20140116
  3. NEFOPAM [Suspect]
     Indication: PAIN
     Dosage: STRENGTH: 20 MG/2 ML
     Route: 065
     Dates: start: 20131217, end: 20131217
  4. HEXAQUINE [Suspect]
     Indication: PRODUCT USED FOR UNKNOWN INDICATION
     Route: 048
     Dates: end: 20131216

REACTIONS (2)
  - Neutropenia [Recovered/Resolved]
  - Haemoglobin decreased [Recovered/Resolved]
